FAERS Safety Report 18197816 (Version 1)
Quarter: 2020Q3

REPORT INFORMATION
  Report Type: Spontaneous
  Country: US (occurrence: US)
  Receive Date: 20200826
  Receipt Date: 20200826
  Transmission Date: 20201103
  Serious: Yes (Life-Threatening)
  Sender: FDA-Public Use
  Company Number: None

PATIENT
  Age: 82 Year
  Sex: Male
  Weight: 74.84 kg

DRUGS (8)
  1. BETA CARROTENE [Concomitant]
  2. CYSTINE [Concomitant]
     Active Substance: CYSTINE
  3. ACYCLOVIR 400MG TABS, 400 MG [Suspect]
     Active Substance: ACYCLOVIR
     Indication: HERPES SIMPLEX VIRAEMIA
     Dosage: ?          QUANTITY:1 DF DOSAGE FORM;?
     Route: 048
     Dates: start: 20200110, end: 20200111
  4. B?100 [Concomitant]
  5. CALCIUM [Concomitant]
     Active Substance: CALCIUM
  6. MULTI VIT [Concomitant]
     Active Substance: VITAMINS
  7. C [Concomitant]
  8. LECITHIN [Concomitant]
     Active Substance: LECITHIN

REACTIONS (6)
  - Chromaturia [None]
  - Diarrhoea [None]
  - Balance disorder [None]
  - Dyspnoea [None]
  - Urine odour abnormal [None]
  - Headache [None]

NARRATIVE: CASE EVENT DATE: 20200110
